FAERS Safety Report 9499489 (Version 1)
Quarter: 2013Q1

REPORT INFORMATION
  Report Type: Spontaneous
  Country: US (occurrence: None)
  Receive Date: 20130107
  Receipt Date: 20130107
  Transmission Date: 20140127
  Serious: No
  Sender: FDA-Public Use
  Company Number: PHEH2012US022966

PATIENT
  Age: 56 Year
  Sex: Male

DRUGS (3)
  1. GILENYA [Suspect]
     Route: 048
     Dates: start: 20100901
  2. CALCIUM [Concomitant]
  3. TESTOSTERONE (TESTOSTERONE) [Concomitant]

REACTIONS (3)
  - Bone density decreased [None]
  - Lymphocyte count decreased [None]
  - Nasopharyngitis [None]
